FAERS Safety Report 4527893-1 (Version None)
Quarter: 2004Q4

REPORT INFORMATION
  Report Type: 
  Country: None (occurrence: None)
  Receive Date: 20041123
  Receipt Date: 20041008
  Transmission Date: 20050328
  Serious: Yes (Hospitalization)
  Sender: FDA-Public Use
  Company Number: US-JNJFOC-20041003515

PATIENT
  Age: 54 Year
  Sex: Male
  Weight: 77.1115 kg

DRUGS (9)
  1. RISPERDAL [Suspect]
     Indication: SCHIZOPHRENIA
     Dosage: 25 MG, INTRAMUSCULAR; 3 MG, IN 1 DAY, ORAL
     Route: 048
     Dates: start: 20040927
  2. RISPERIDONE [Suspect]
     Indication: SCHIZOPHRENIA
     Dosage: 6 MG, IN 1 DAY, ORAL
     Route: 048
  3. GLIPIZIDE [Concomitant]
  4. ROSIGLITAZONE (ROSIGLITAZONE) [Concomitant]
  5. METFORMIN (METFORMIN) [Concomitant]
  6. CELEXA [Concomitant]
  7. DEPAKOTE [Concomitant]
  8. TRAZADONE (TRAZODONE) [Concomitant]
  9. LISINOPRIL [Concomitant]

REACTIONS (3)
  - CONDITION AGGRAVATED [None]
  - DIABETES MELLITUS [None]
  - PSYCHOTIC DISORDER [None]
